FAERS Safety Report 24534351 (Version 1)
Quarter: 2024Q4

REPORT INFORMATION
  Report Type: Spontaneous
  Country: DE (occurrence: DE)
  Receive Date: 20241022
  Receipt Date: 20241022
  Transmission Date: 20250114
  Serious: Yes (Hospitalization)
  Sender: ABBVIE
  Company Number: DE-ABBVIE-5971470

PATIENT
  Age: 33 Year
  Sex: Male

DRUGS (2)
  1. RINVOQ [Suspect]
     Active Substance: UPADACITINIB
     Indication: Colitis ulcerative
     Dosage: END DATE: 2023
     Route: 048
     Dates: start: 202308
  2. RINVOQ [Suspect]
     Active Substance: UPADACITINIB
     Indication: Colitis ulcerative
     Route: 048
     Dates: end: 202308

REACTIONS (6)
  - Large intestine infection [Unknown]
  - Frequent bowel movements [Unknown]
  - Haematochezia [Unknown]
  - Iron deficiency [Unknown]
  - Abdominal pain [Unknown]
  - C-reactive protein increased [Unknown]

NARRATIVE: CASE EVENT DATE: 20230101
